FAERS Safety Report 9735189 (Version 1)
Quarter: 2013Q4

REPORT INFORMATION
  Report Type: Spontaneous
  Country: DK (occurrence: DK)
  Receive Date: 20131206
  Receipt Date: 20131206
  Transmission Date: 20140711
  Serious: Yes (Other)
  Sender: FDA-Public Use
  Company Number: DK-JNJFOC-20131202901

PATIENT
  Age: 7 Year
  Sex: Female
  Weight: 20.7 kg

DRUGS (1)
  1. CONCERTA [Suspect]
     Indication: ATTENTION DEFICIT/HYPERACTIVITY DISORDER
     Route: 048
     Dates: start: 20130731, end: 20130808

REACTIONS (3)
  - Self injurious behaviour [Recovered/Resolved]
  - Aggression [Recovered/Resolved]
  - Anger [Recovered/Resolved]
